FAERS Safety Report 10436128 (Version 2)
Quarter: 2014Q4

REPORT INFORMATION
  Report Type: Spontaneous
  Country: US (occurrence: US)
  Receive Date: 20140908
  Receipt Date: 20141022
  Transmission Date: 20150528
  Serious: Yes (Other)
  Sender: FDA-Public Use
  Company Number: US-009507513-1409USA001235

PATIENT
  Age: 17 Year
  Sex: Female
  Weight: 78.82 kg

DRUGS (1)
  1. NEXPLANON [Suspect]
     Active Substance: ETONOGESTREL
     Indication: CONTRACEPTION
     Dosage: UNK
     Route: 059
     Dates: start: 20130529, end: 20140902

REACTIONS (5)
  - Pain in extremity [Recovered/Resolved]
  - Breast pain [Unknown]
  - Adverse event [Unknown]
  - Device breakage [Recovered/Resolved]
  - Implant site pain [Recovered/Resolved]

NARRATIVE: CASE EVENT DATE: 201403
